FAERS Safety Report 7255416-5 (Version None)
Quarter: 2011Q1

REPORT INFORMATION
  Report Type: 
  Country: None (occurrence: None)
  Receive Date: 20110129
  Receipt Date: 20100412
  Transmission Date: 20110831
  Serious: No
  Sender: FDA-Public Use
  Company Number: US-ABBOTT-10P-163-0637910-00

PATIENT
  Sex: Female
  Weight: 74.91 kg

DRUGS (9)
  1. PRILOSEC [Concomitant]
     Indication: PRODUCT USED FOR UNKNOWN INDICATION
  2. METHOTREXATE [Suspect]
     Indication: RHEUMATOID ARTHRITIS
     Dates: end: 20100101
  3. ELAVIL [Concomitant]
     Indication: PRODUCT USED FOR UNKNOWN INDICATION
  4. HUMIRA [Suspect]
     Indication: RHEUMATOID ARTHRITIS
     Route: 058
     Dates: start: 20090401
  5. HUMIRA [Suspect]
     Route: 058
     Dates: end: 20091201
  6. PLAQUENIL [Concomitant]
     Indication: RHEUMATOID ARTHRITIS
     Dates: start: 20100101
  7. HUMIRA [Suspect]
  8. THYROID MEDICATION [Concomitant]
     Indication: HYPOTHYROIDISM
  9. MOBIC [Concomitant]
     Indication: RHEUMATOID ARTHRITIS

REACTIONS (5)
  - WHITE BLOOD CELL COUNT DECREASED [None]
  - PRURITUS [None]
  - URTICARIA [None]
  - DIARRHOEA [None]
  - THIRST [None]
